FAERS Safety Report 14456502 (Version 1)
Quarter: 2018Q1

REPORT INFORMATION
  Report Type: Spontaneous
  Country: IT (occurrence: IT)
  Receive Date: 20180130
  Receipt Date: 20180130
  Transmission Date: 20180509
  Serious: Yes (Life-Threatening)
  Sender: FDA-Public Use
  Company Number: IT-BAUSCH-BL-2018-001625

PATIENT
  Age: 67 Year
  Sex: Male

DRUGS (3)
  1. GENTAMICIN SULFATE. [Suspect]
     Active Substance: GENTAMICIN SULFATE
     Indication: BRONCHIECTASIS
     Dosage: (3 ML OF A 40 MG.ML- 1 STANDARD SOLUTION DILUTED IN 2 ML OF ISOTONIC SALINE USING THE MIZER ACO
     Route: 055
  2. ISOTONIC SODIUM CHLORIDE SOLUTION [Concomitant]
     Active Substance: SODIUM CHLORIDE
     Indication: PRODUCT USED FOR UNKNOWN INDICATION
  3. SALBUTAMOL [Concomitant]
     Active Substance: ALBUTEROL
     Indication: PRODUCT USED FOR UNKNOWN INDICATION
     Dosage: (TWO PUFFS FROM A METERED-DOSE INHALER)
     Route: 055

REACTIONS (3)
  - Off label use [Unknown]
  - Acute respiratory failure [Recovered/Resolved]
  - Product use issue [Unknown]

NARRATIVE: CASE EVENT DATE: 19930920
